FAERS Safety Report 20991619 (Version 1)
Quarter: 2022Q2

REPORT INFORMATION
  Report Type: Spontaneous
  Country: PT (occurrence: PT)
  Receive Date: 20220622
  Receipt Date: 20220622
  Transmission Date: 20220721
  Serious: Yes (Other)
  Sender: FDA-Public Use
  Company Number: PT-INFARMED-B202206-408

PATIENT
  Sex: Female

DRUGS (1)
  1. AMOXICILLIN [Suspect]
     Active Substance: AMOXICILLIN
     Indication: Product used for unknown indication
     Dosage: UNK (EPISODE IN 2015 AND ANOTHER IN 2019)
     Route: 065
     Dates: start: 2015

REACTIONS (2)
  - Eyelid oedema [Recovered/Resolved]
  - Rash pruritic [Recovered/Resolved]
